FAERS Safety Report 4817085-0 (Version None)
Quarter: 2005Q4

REPORT INFORMATION
  Report Type: 
  Country: None (occurrence: None)
  Receive Date: 20051101
  Receipt Date: 20051020
  Transmission Date: 20060501
  Serious: Yes (Hospitalization)
  Sender: FDA-Public Use
  Company Number: CH-BRISTOL-MYERS SQUIBB COMPANY-13152152

PATIENT
  Age: 57 Year
  Sex: Male
  Weight: 89 kg

DRUGS (11)
  1. MAXIPIME [Suspect]
     Route: 042
     Dates: start: 20050519, end: 20050521
  2. AMIKIN [Suspect]
     Route: 042
     Dates: start: 20050519, end: 20050521
  3. LITAK [Suspect]
     Indication: HAIRY CELL LEUKAEMIA
     Dates: start: 20050511, end: 20050515
  4. ALLOPURINOL [Suspect]
     Route: 048
     Dates: end: 20050523
  5. ASPIRIN [Concomitant]
     Route: 048
  6. SELIPRAN TABS [Concomitant]
     Route: 048
  7. ENATEC [Concomitant]
     Route: 048
  8. VITAMIN B-12 [Concomitant]
  9. FLUNIZOL [Concomitant]
     Route: 048
  10. NOPIL [Concomitant]
     Route: 048
  11. VALTREX [Concomitant]
     Route: 048

REACTIONS (6)
  - DIZZINESS [None]
  - FATIGUE [None]
  - PAIN IN EXTREMITY [None]
  - PANCYTOPENIA [None]
  - PYREXIA [None]
  - RASH [None]
